FAERS Safety Report 6688150-0 (Version None)
Quarter: 2010Q2

REPORT INFORMATION
  Report Type: 
  Country: None (occurrence: None)
  Receive Date: 20100420
  Receipt Date: 20100408
  Transmission Date: 20101027
  Serious: Yes (Other)
  Sender: FDA-Public Use
  Company Number: CN-PFIZER INC-2010038054

PATIENT
  Age: 7 Year

DRUGS (5)
  1. VFEND [Suspect]
     Indication: PNEUMONIA FUNGAL
     Dosage: 200 MG, 2X/DAY
     Route: 048
     Dates: start: 20100225, end: 20100314
  2. VFEND [Suspect]
     Dosage: 100 MG, 2X/DAY
     Route: 048
     Dates: start: 20100315
  3. VINCRISTINE [Concomitant]
     Indication: ACUTE LEUKAEMIA
     Dosage: UNK
  4. DEXAMETHASONE [Concomitant]
     Indication: ACUTE LEUKAEMIA
     Dosage: UNK
  5. ASPARAGINASE [Concomitant]
     Indication: ACUTE LEUKAEMIA
     Dosage: UNK

REACTIONS (2)
  - CONVULSION [None]
  - LEUKOENCEPHALOPATHY [None]
